FAERS Safety Report 8474380-4 (Version None)
Quarter: 2012Q2

REPORT INFORMATION
  Report Type: 
  Country: None (occurrence: None)
  Receive Date: 20120628
  Receipt Date: 20120315
  Transmission Date: 20120825
  Serious: Yes (Death)
  Sender: FDA-Public Use
  Company Number: US-MYLANLABS-2012S1002186

PATIENT
  Sex: Male

DRUGS (15)
  1. CLOZAPINE [Suspect]
     Route: 048
     Dates: start: 20110308
  2. SIMETHICONE [Concomitant]
  3. STOOL SOFTENER [Concomitant]
  4. BACID [Concomitant]
  5. ACETAMINOPHEN AND OXYCODONE HCL [Concomitant]
     Dosage: 5/325MG
  6. GABITRIL [Concomitant]
  7. DIVALPROEX SODIUM [Concomitant]
  8. TOPIRAMATE [Concomitant]
  9. BENZONATATE [Concomitant]
  10. SENNA PLUS /00142201/ [Concomitant]
  11. CLOZAPINE [Suspect]
     Route: 048
     Dates: start: 20110308
  12. CLONAZEPAM [Concomitant]
  13. CARBIDOPA AND LEVODOPA [Concomitant]
  14. LEVOTHYROXINE [Concomitant]
  15. AZILECT [Concomitant]

REACTIONS (1)
  - DEATH [None]
